FAERS Safety Report 6182637-5 (Version None)
Quarter: 2009Q2

REPORT INFORMATION
  Report Type: 
  Country: None (occurrence: None)
  Receive Date: 20090505
  Receipt Date: 20090428
  Transmission Date: 20091009
  Serious: Yes (Other)
  Sender: FDA-Public Use
  Company Number: 2009SP009067

PATIENT
  Age: 47 Year
  Sex: Male

DRUGS (2)
  1. DESLORATADINE [Suspect]
     Indication: SEASONAL ALLERGY
     Dosage: 5 MG; QD; PO
     Route: 048
     Dates: start: 20090421, end: 20090423
  2. ALLERGOSPASMIN [Concomitant]

REACTIONS (2)
  - ANGIOEDEMA [None]
  - CARDIOVASCULAR DISORDER [None]
